FAERS Safety Report 23872784 (Version 1)
Quarter: 2024Q2

REPORT INFORMATION
  Report Type: Spontaneous
  Country: SE (occurrence: SE)
  Receive Date: 20240520
  Receipt Date: 20240520
  Transmission Date: 20240716
  Serious: Yes (Hospitalization, Other)
  Sender: FDA-Public Use
  Company Number: SE-SEMPA-2024-003833

PATIENT
  Age: 86 Year
  Sex: Male

DRUGS (2)
  1. HYDROCHLOROTHIAZIDE\LOSARTAN POTASSIUM [Suspect]
     Active Substance: HYDROCHLOROTHIAZIDE\LOSARTAN POTASSIUM
     Indication: Product used for unknown indication
     Dosage: UNK
     Route: 065
     Dates: end: 202403
  2. LASIX [Suspect]
     Active Substance: FUROSEMIDE
     Indication: Product used for unknown indication
     Dosage: UNK
     Route: 065
     Dates: end: 202403

REACTIONS (5)
  - Acute kidney injury [Recovering/Resolving]
  - Confusional state [Recovering/Resolving]
  - Fall [Recovering/Resolving]
  - Dehydration [Recovering/Resolving]
  - Hypotension [Recovering/Resolving]

NARRATIVE: CASE EVENT DATE: 20240301
